FAERS Safety Report 9753249 (Version 2)
Quarter: 2013Q4

REPORT INFORMATION
  Report Type: Spontaneous
  Country: US (occurrence: US)
  Receive Date: 20131213
  Receipt Date: 20131213
  Transmission Date: 20140711
  Serious: No
  Sender: FDA-Public Use
  Company Number: US-GILEAD-2010-0027256

PATIENT
  Sex: Female
  Weight: 108.86 kg

DRUGS (24)
  1. LETAIRIS [Suspect]
     Indication: PULMONARY ARTERIAL HYPERTENSION
     Route: 048
     Dates: start: 20070809
  2. REMODULIN [Concomitant]
  3. COZAAR [Concomitant]
  4. COREG [Concomitant]
  5. DIGOXIN [Concomitant]
  6. SIMVASTATIN [Concomitant]
  7. LASIX [Concomitant]
  8. COUMADIN [Concomitant]
  9. MECLIZINE [Concomitant]
  10. VITAMIN D [Concomitant]
  11. ZOLOFT [Concomitant]
  12. POTASSIUM CL [Concomitant]
  13. CLOMIPRAMINE [Concomitant]
  14. CORTISPORIN [Concomitant]
  15. CALCIUM +D [Concomitant]
  16. SYNTHROID [Concomitant]
  17. FERROUS SULF [Concomitant]
  18. OXYGEN [Concomitant]
  19. TYLENOL EX-STR [Concomitant]
  20. LOMOTIL [Concomitant]
  21. PLAQUENIL [Concomitant]
  22. PREDNISONE [Concomitant]
  23. ASPIRIN [Concomitant]
  24. ALPRAZOLAM [Concomitant]

REACTIONS (2)
  - Chest pain [Unknown]
  - Anxiety [Unknown]
